FAERS Safety Report 10716183 (Version 1)
Quarter: 2015Q1

REPORT INFORMATION
  Report Type: Spontaneous
  Country: US (occurrence: None)
  Receive Date: 20150109
  Receipt Date: 20150109
  Transmission Date: 20150721
  Serious: Yes (Hospitalization)
  Sender: FDA-Public Use
  Company Number: 2014PROUSA03811

PATIENT
  Age: 65 Year
  Sex: Male

DRUGS (10)
  1. SIMVASTATIN (SIMVASTATIN) [Concomitant]
     Active Substance: SIMVASTATIN
  2. LASIX [Concomitant]
     Active Substance: FUROSEMIDE
  3. PROVENGE [Suspect]
     Active Substance: SIPULEUCEL-T
     Indication: PROSTATE CANCER METASTATIC
     Dosage: 250 ML, SINGLE, INTRAVENOUS
     Route: 042
     Dates: start: 20140606, end: 20140606
  4. BICALUTAMIDE (BICALUTAMIDE) 80 MG [Concomitant]
     Active Substance: BICALUTAMIDE
  5. METOPROLOL (METOOROLOL (TARTRATE) [Concomitant]
  6. DIGOXIN (DIGOXIN) [Concomitant]
     Active Substance: DIGOXIN
  7. XARELTO [Concomitant]
     Active Substance: RIVAROXABAN
  8. LUPRON (LEUPROELIN ACETATE) [Concomitant]
  9. FINASTERIDE (FINASTERIDE) [Concomitant]
     Active Substance: FINASTERIDE
  10. LISINOPRIL (LISINOPRIL) [Concomitant]
     Active Substance: LISINOPRIL

REACTIONS (1)
  - Device related infection [None]

NARRATIVE: CASE EVENT DATE: 20140610
